FAERS Safety Report 18298726 (Version 1)
Quarter: 2020Q3

REPORT INFORMATION
  Report Type: Spontaneous
  Country: FR (occurrence: FR)
  Receive Date: 20200923
  Receipt Date: 20200923
  Transmission Date: 20201103
  Serious: Yes (Other)
  Sender: FDA-Public Use
  Company Number: FR-SA-2020SA254449

PATIENT

DRUGS (2)
  1. STILNOX [Suspect]
     Active Substance: ZOLPIDEM TARTRATE
     Dosage: UNK
     Route: 065
  2. MAGNESIUM [Concomitant]
     Active Substance: MAGNESIUM
     Dosage: 3 DF, QD
     Route: 065

REACTIONS (3)
  - Blood bilirubin increased [Not Recovered/Not Resolved]
  - Liver injury [Not Recovered/Not Resolved]
  - Insomnia [Not Recovered/Not Resolved]
